FAERS Safety Report 9455864 (Version 1)
Quarter: 2013Q3

REPORT INFORMATION
  Report Type: Spontaneous
  Country: SI (occurrence: SI)
  Receive Date: 20130813
  Receipt Date: 20130813
  Transmission Date: 20140515
  Serious: Yes (Hospitalization)
  Sender: FDA-Public Use
  Company Number: SI-ELI_LILLY_AND_COMPANY-SI201305001859

PATIENT
  Age: 51 Year
  Sex: Female

DRUGS (4)
  1. ZYPADHERA [Suspect]
     Indication: SCHIZOPHRENIA
     Dosage: 405 MG, UNKNOWN
     Route: 030
     Dates: start: 20130211
  2. ZYPADHERA [Suspect]
     Dosage: 300 MG, PER 2 WEEKS
     Route: 030
     Dates: start: 20130430
  3. ASENTRA [Concomitant]
     Dosage: 50 MG, BID
  4. NEXIUM [Concomitant]
     Dosage: 40 MG, QD

REACTIONS (4)
  - Delirium [Recovered/Resolved]
  - Sedation [Recovered/Resolved]
  - Urinary retention [Unknown]
  - Injection site haemorrhage [Recovered/Resolved]
